FAERS Safety Report 5470229-2 (Version None)
Quarter: 2007Q3

REPORT INFORMATION
  Report Type: 
  Country: None (occurrence: None)
  Receive Date: 20070927
  Receipt Date: 20070926
  Transmission Date: 20080115
  Serious: Yes (Hospitalization)
  Sender: FDA-Public Use
  Company Number: LV-MERCK-0709HUN00014

PATIENT
  Age: 69 Year
  Sex: Male
  Weight: 86 kg

DRUGS (7)
  1. EZETIMIBE [Suspect]
     Indication: HYPERCHOLESTEROLAEMIA
     Route: 048
     Dates: start: 20060815, end: 20070919
  2. ATORVASTATIN CALCIUM [Concomitant]
     Indication: HYPERCHOLESTEROLAEMIA
     Route: 065
     Dates: start: 20070604, end: 20070919
  3. AMIODARONE HYDROCHLORIDE [Concomitant]
     Route: 065
     Dates: start: 20070604, end: 20070919
  4. RAMIPRIL [Concomitant]
     Route: 065
     Dates: start: 20070604, end: 20070919
  5. [THERAPY UNSPECIFIED] [Concomitant]
     Route: 065
     Dates: start: 20070604, end: 20070919
  6. [THERAPY UNSPECIFIED] [Concomitant]
     Route: 065
     Dates: start: 20070604, end: 20070919
  7. BISOPROLOL FUMARATE [Concomitant]
     Route: 065
     Dates: start: 20070604, end: 20070919

REACTIONS (1)
  - ACUTE CORONARY SYNDROME [None]
